FAERS Safety Report 10529853 (Version 1)
Quarter: 2014Q4

REPORT INFORMATION
  Report Type: Spontaneous
  Country: US (occurrence: None)
  Receive Date: 20141014
  Receipt Date: 20141014
  Transmission Date: 20150528
  Serious: No
  Sender: FDA-Public Use
  Company Number: None

PATIENT

DRUGS (2)
  1. DOXORUBICIN HCL [Suspect]
     Active Substance: DOXORUBICIN HYDROCHLORIDE
  2. DOXORUBICIN LISPOSOMAL [Suspect]
     Active Substance: DOXORUBICIN

REACTIONS (1)
  - Intercepted drug dispensing error [None]
